FAERS Safety Report 21261771 (Version 1)
Quarter: 2022Q3

REPORT INFORMATION
  Report Type: Spontaneous
  Country: BR (occurrence: BR)
  Receive Date: 20220827
  Receipt Date: 20220827
  Transmission Date: 20221027
  Serious: Yes (Other)
  Sender: FDA-Public Use
  Company Number: BR-BoehringerIngelheim-2022-BI-188899

PATIENT
  Age: 65 Year
  Sex: Female
  Weight: 60 kg

DRUGS (5)
  1. JARDIANCE [Suspect]
     Active Substance: EMPAGLIFLOZIN
     Indication: Type 2 diabetes mellitus
     Dosage: 2 TABLETS, ONE TABLET IN THE MORNING AND ONE IN THE AFTERNOON, ORALLY
     Route: 048
  2. Carmazepina [Concomitant]
     Indication: Insomnia
     Dosage: 2 TABLETS OF 200 MG AT NIGHT
     Route: 048
  3. RIVOTRIL [Concomitant]
     Active Substance: CLONAZEPAM
     Indication: Depression
     Route: 048
  4. RIVOTRIL [Concomitant]
     Active Substance: CLONAZEPAM
     Indication: Insomnia
  5. Alifripirina [Concomitant]
     Indication: Depression
     Dosage: 3 TABLETS OF 25 MG PER DAY
     Route: 048

REACTIONS (5)
  - Retinal vein occlusion [Recovered/Resolved]
  - Cataract [Recovered/Resolved]
  - Cataract [Recovered/Resolved]
  - Overdose [Unknown]
  - Prescription drug used without a prescription [Unknown]

NARRATIVE: CASE EVENT DATE: 20190101
